FAERS Safety Report 5482726-4 (Version None)
Quarter: 2007Q4

REPORT INFORMATION
  Report Type: 
  Country: None (occurrence: None)
  Receive Date: 20071011
  Receipt Date: 20070928
  Transmission Date: 20080405
  Serious: Yes (Death, Life-Threatening, Hospitalization)
  Sender: FDA-Public Use
  Company Number: GB-PFIZER INC-2007069024

PATIENT
  Sex: Male
  Weight: 98 kg

DRUGS (7)
  1. VFEND [Suspect]
     Indication: FUNGAL INFECTION
     Dates: start: 20070809, end: 20070815
  2. SEPTRIN [Interacting]
  3. COTRIM [Concomitant]
     Route: 042
     Dates: start: 20070809, end: 20070815
  4. MEROPENEM [Concomitant]
     Route: 042
     Dates: start: 20070815, end: 20070820
  5. PYRIDOXINE HCL [Concomitant]
     Route: 048
  6. ISONIAZID [Concomitant]
     Route: 048
  7. LANSOPRAZOLE [Concomitant]
     Route: 048

REACTIONS (5)
  - DRUG INTERACTION [None]
  - FIBROSIS [None]
  - HAEMODIALYSIS [None]
  - HYPERKALAEMIA [None]
  - RESPIRATORY FAILURE [None]
